FAERS Safety Report 21594335 (Version 1)
Quarter: 2022Q4

REPORT INFORMATION
  Report Type: Spontaneous
  Country: US (occurrence: None)
  Receive Date: 20221115
  Receipt Date: 20221115
  Transmission Date: 20230113
  Serious: Yes (Other)
  Sender: FDA-Public Use
  Company Number: US-ROCHE-3175963

PATIENT
  Age: 59 Year
  Sex: Male

DRUGS (1)
  1. VABYSMO [Suspect]
     Active Substance: FARICIMAB-SVOA
     Indication: Neovascular age-related macular degeneration
     Dosage: ADMINISTERED IN BOTH EYES ;ONGOING: UNKNOWN, DATES OF THERAPY: 20/MAY/2022, 24/JUN/2022, 22/JUL/2022
     Route: 050
     Dates: start: 20220422

REACTIONS (1)
  - Uveitis [Not Recovered/Not Resolved]

NARRATIVE: CASE EVENT DATE: 20220901
